FAERS Safety Report 12738254 (Version 1)
Quarter: 2016Q3

REPORT INFORMATION
  Report Type: Spontaneous
  Country: US (occurrence: US)
  Receive Date: 20160913
  Receipt Date: 20160913
  Transmission Date: 20161109
  Serious: No
  Sender: FDA-Public Use
  Company Number: None

PATIENT
  Age: 47 Year
  Sex: Male

DRUGS (1)
  1. TRUVADA [Suspect]
     Active Substance: EMTRICITABINE\TENOFOVIR DISOPROXIL FUMARATE
     Indication: HIV INFECTION
     Dosage: 10/31/2016 AND STILL ON 9/12/2016 200-300MG QD ORAL
     Route: 048
     Dates: end: 20160912

REACTIONS (1)
  - Insomnia [None]

NARRATIVE: CASE EVENT DATE: 20131031
